FAERS Safety Report 26096585 (Version 1)
Quarter: 2025Q4

REPORT INFORMATION
  Report Type: Spontaneous
  Country: US (occurrence: US)
  Receive Date: 20251127
  Receipt Date: 20251127
  Transmission Date: 20260118
  Serious: Yes (Hospitalization)
  Sender: ALEXION PHARMACEUTICALS
  Company Number: US-AstraZeneca-CH-01000378AP

PATIENT
  Sex: Female

DRUGS (1)
  1. LYNPARZA [Suspect]
     Active Substance: OLAPARIB
     Route: 065

REACTIONS (8)
  - Pyrexia [Recovering/Resolving]
  - Viral infection [Unknown]
  - Neutropenia [Recovering/Resolving]
  - Platelet count decreased [Recovering/Resolving]
  - Red blood cell count decreased [Recovering/Resolving]
  - Acute myeloid leukaemia [Recovering/Resolving]
  - Sinusitis [Recovering/Resolving]
  - Visual impairment [Not Recovered/Not Resolved]
